FAERS Safety Report 24325529 (Version 1)
Quarter: 2024Q3

REPORT INFORMATION
  Report Type: Report from Study
  Country: US (occurrence: US)
  Receive Date: 20240917
  Receipt Date: 20240917
  Transmission Date: 20241016
  Serious: Yes (Other)
  Sender: ABBVIE
  Company Number: US-ABBVIE-5856433

PATIENT
  Age: 64 Year
  Sex: Male

DRUGS (2)
  1. IMBRUVICA [Suspect]
     Active Substance: IBRUTINIB
     Indication: Chronic lymphocytic leukaemia
     Route: 048
     Dates: start: 20181216
  2. ASPIRIN [Suspect]
     Active Substance: ASPIRIN
     Indication: Product used for unknown indication
     Route: 065

REACTIONS (7)
  - Gastric perforation [Unknown]
  - Iron deficiency [Unknown]
  - Red blood cell count decreased [Unknown]
  - Road traffic accident [Unknown]
  - Haemorrhage [Unknown]
  - Arthropathy [Unknown]
  - Polyp [Recovered/Resolved]

NARRATIVE: CASE EVENT DATE: 20240401
